FAERS Safety Report 7110404-4 (Version None)
Quarter: 2010Q4

REPORT INFORMATION
  Report Type: 
  Country: None (occurrence: None)
  Receive Date: 20101118
  Receipt Date: 20101104
  Transmission Date: 20110411
  Serious: Yes (Hospitalization, Other)
  Sender: FDA-Public Use
  Company Number: PHHY2010CH70701

PATIENT
  Age: 72 Year
  Sex: Female

DRUGS (2)
  1. DICLOFENAC SODIUM [Suspect]
     Indication: PAIN IN JAW
     Dosage: UNK
  2. CLINDAMYCIN [Suspect]
     Indication: PAIN IN JAW
     Dosage: UNK

REACTIONS (26)
  - AGRANULOCYTOSIS [None]
  - ANTINUCLEAR ANTIBODY INCREASED [None]
  - ARTHRALGIA [None]
  - ASTHENIA [None]
  - AUTOIMMUNE NEUTROPENIA [None]
  - CHEST PAIN [None]
  - COUGH [None]
  - DECREASED APPETITE [None]
  - DOUBLE STRANDED DNA ANTIBODY POSITIVE [None]
  - FATIGUE [None]
  - FEBRILE NEUTROPENIA [None]
  - HISTONE ANTIBODY POSITIVE [None]
  - LEUKOPENIA [None]
  - LUNG INFECTION [None]
  - NORMOCHROMIC NORMOCYTIC ANAEMIA [None]
  - ODYNOPHAGIA [None]
  - PHARYNGEAL ERYTHEMA [None]
  - PLEURAL EFFUSION [None]
  - PLEURISY [None]
  - RALES [None]
  - SALIVARY GLAND OPERATION [None]
  - SCAR [None]
  - SIALOADENITIS [None]
  - SYNOVITIS [None]
  - SYSTEMIC LUPUS ERYTHEMATOSUS [None]
  - UPPER RESPIRATORY TRACT INFECTION [None]
